FAERS Safety Report 19186678 (Version 2)
Quarter: 2021Q2

REPORT INFORMATION
  Report Type: Spontaneous
  Country: US (occurrence: US)
  Receive Date: 20210427
  Receipt Date: 20210507
  Transmission Date: 20210717
  Serious: Yes (Other)
  Sender: FDA-Public Use
  Company Number: US-BRISTOL-MYERS SQUIBB COMPANY-BMS-2021-037629

PATIENT
  Age: 37 Year
  Sex: Male

DRUGS (1)
  1. KENALOG?40 [Suspect]
     Active Substance: TRIAMCINOLONE ACETONIDE
     Indication: PACHYDERMODACTYLY
     Dosage: 0.5 MILLILITER
     Route: 065

REACTIONS (3)
  - Extraskeletal ossification [Not Recovered/Not Resolved]
  - Intentional product use issue [Unknown]
  - Injection site calcification [Unknown]
